FAERS Safety Report 4606023-1 (Version None)
Quarter: 2005Q1

REPORT INFORMATION
  Report Type: 
  Country: None (occurrence: None)
  Receive Date: 20050311
  Receipt Date: 20050113
  Transmission Date: 20050727
  Serious: Yes (Hospitalization)
  Sender: FDA-Public Use
  Company Number: US-ROCHE-392395

PATIENT
  Age: 51 Year
  Sex: Male

DRUGS (15)
  1. PEG-INTERFERON ALFA 2A (RO 25-8310) [Suspect]
     Route: 058
     Dates: start: 20041008, end: 20050107
  2. VIRAMIDINE [Suspect]
     Route: 048
     Dates: start: 20041008, end: 20050107
  3. TRAZODONE HCL [Concomitant]
     Dates: start: 20040715
  4. PREDNISONE [Concomitant]
     Dates: start: 20041229
  5. VANCOMYCIN [Concomitant]
     Dates: start: 20050110, end: 20050118
  6. OCTREOTIDE [Concomitant]
     Dates: start: 20050115, end: 20050128
  7. OPIUM TINCTURE [Concomitant]
     Dates: start: 20050111
  8. BICARB [Concomitant]
     Dates: start: 20050110, end: 20050115
  9. CALCIUM PHOSPHATE [Concomitant]
     Dates: start: 20050110, end: 20050115
  10. FLUNISOLIDE [Concomitant]
     Dates: start: 20050114, end: 20050128
  11. DOXYCYCLINE [Concomitant]
     Dates: start: 20050128, end: 20050131
  12. LEVOFLOXACIN [Concomitant]
     Dates: start: 20050129, end: 20050201
  13. INSULIN [Concomitant]
  14. POTASSIUM CHLORIDE [Concomitant]
     Dates: start: 20050128, end: 20050204
  15. HYDROCORTISONE [Concomitant]
     Dates: start: 20050128

REACTIONS (13)
  - CHILLS [None]
  - COUGH [None]
  - DEHYDRATION [None]
  - DIARRHOEA [None]
  - ENTEROCOCCAL BACTERAEMIA [None]
  - ERYTHEMA MULTIFORME [None]
  - HAEMOPHILUS INFECTION [None]
  - HYPERGLYCAEMIA [None]
  - HYPOKALAEMIA [None]
  - PYREXIA [None]
  - RASH ERYTHEMATOUS [None]
  - STAPHYLOCOCCAL BACTERAEMIA [None]
  - VOMITING [None]
